FAERS Safety Report 7577337 (Version 3)
Quarter: 2014Q1

REPORT INFORMATION
  Report Type: Spontaneous
  Country: US (occurrence: US)
  Receive Date: 20100909
  Receipt Date: 20140127
  Transmission Date: 20141002
  Serious: Yes (Hospitalization, Other)
  Sender: FDA-Public Use
  Company Number: US-BAYER-201032534NA

PATIENT
  Age: 34 Year
  Sex: Female
  Weight: 68.03 kg

DRUGS (7)
  1. YAZ [Suspect]
     Indication: PRODUCT USED FOR UNKNOWN INDICATION
     Route: 048
  2. YASMIN [Suspect]
     Indication: PRODUCT USED FOR UNKNOWN INDICATION
     Route: 048
  3. CEPHALEXIN [Concomitant]
     Dosage: 500 MG, UNK
  4. HYPERCARE [Concomitant]
     Dosage: UNK
  5. ADVIL [Concomitant]
     Dosage: UNK
     Dates: start: 20080909
  6. KEFLEX [Concomitant]
  7. VICODIN [Concomitant]

REACTIONS (4)
  - Organ failure [Unknown]
  - Gallbladder non-functioning [Unknown]
  - Hepatic function abnormal [Unknown]
  - Cholecystitis chronic [Recovering/Resolving]
